FAERS Safety Report 12413188 (Version 5)
Quarter: 2018Q1

REPORT INFORMATION
  Report Type: Report from Study
  Country: BR (occurrence: BR)
  Receive Date: 20160527
  Receipt Date: 20180306
  Transmission Date: 20180508
  Serious: Yes (Life-Threatening)
  Sender: FDA-Public Use
  Company Number: PHHY2016BR062056

PATIENT
  Age: 64 Year
  Sex: Male
  Weight: 62 kg

DRUGS (2)
  1. SANDOSTATIN LAR DEPOT [Suspect]
     Active Substance: OCTREOTIDE ACETATE
     Indication: ACROMEGALY
     Dosage: 30 MG, QMO, ONCE A MONTH (2 AMPOULES OF 20 MG)
     Route: 030
     Dates: start: 200608
  2. SANDOSTATIN LAR DEPOT [Suspect]
     Active Substance: OCTREOTIDE ACETATE
     Dosage: 40 MG, QMO (EVERY 28 DAYS)
     Route: 065
     Dates: start: 20180220

REACTIONS (14)
  - Gait disturbance [Unknown]
  - Drug ineffective [Unknown]
  - Feeling abnormal [Unknown]
  - Blood growth hormone abnormal [Unknown]
  - Fatigue [Unknown]
  - Blood growth hormone increased [Unknown]
  - Body height decreased [Unknown]
  - Insulin-like growth factor increased [Unknown]
  - Oesophageal pain [Unknown]
  - Pain [Unknown]
  - Pain in extremity [Unknown]
  - Spinal pain [Unknown]
  - Arthralgia [Unknown]
  - Headache [Unknown]

NARRATIVE: CASE EVENT DATE: 201508
